FAERS Safety Report 23226510 (Version 1)
Quarter: 2023Q4

REPORT INFORMATION
  Report Type: Report from Study
  Country: US (occurrence: US)
  Receive Date: 20231124
  Receipt Date: 20231124
  Transmission Date: 20240110
  Serious: Yes (Other)
  Sender: FDA-Public Use
  Company Number: US-UCBSA-2023055267

PATIENT
  Age: 31 Year
  Sex: Female

DRUGS (5)
  1. KEPPRA [Interacting]
     Active Substance: LEVETIRACETAM
     Indication: Epilepsy
     Dosage: UNK
     Dates: start: 2021
  2. KEPPRA [Interacting]
     Active Substance: LEVETIRACETAM
     Indication: Seizure
  3. LAMICTAL [Interacting]
     Active Substance: LAMOTRIGINE
     Indication: Seizure
     Dosage: UNK
  4. ZONISAMIDE [Interacting]
     Active Substance: ZONISAMIDE
     Indication: Seizure
     Dosage: UNK
  5. CLONAZEPAM [Interacting]
     Active Substance: CLONAZEPAM
     Indication: Seizure
     Dosage: UNK

REACTIONS (10)
  - Seizure [Unknown]
  - Anaemia [Unknown]
  - Back disorder [Unknown]
  - Endometriosis [Unknown]
  - Memory impairment [Unknown]
  - Photosensitivity reaction [Unknown]
  - Drug interaction [Unknown]
  - Impaired quality of life [Unknown]
  - Balance disorder [Unknown]
  - Multiple-drug resistance [Unknown]

NARRATIVE: CASE EVENT DATE: 20220101
